FAERS Safety Report 23414069 (Version 1)
Quarter: 2024Q1

REPORT INFORMATION
  Report Type: Spontaneous
  Country: DE (occurrence: DE)
  Receive Date: 20240117
  Receipt Date: 20240117
  Transmission Date: 20240410
  Serious: Yes (Other)
  Sender: FDA-Public Use
  Company Number: DE-JNJFOC-20240133309

PATIENT
  Sex: Male

DRUGS (2)
  1. SPRAVATO [Suspect]
     Active Substance: ESKETAMINE
     Indication: Depression
     Dosage: 5 SESSIONS
  2. SPRAVATO [Suspect]
     Active Substance: ESKETAMINE
     Dosage: 6TH SESSION

REACTIONS (2)
  - Panic attack [Recovered/Resolved]
  - Nasopharyngitis [Unknown]
